FAERS Safety Report 5844808-4 (Version None)
Quarter: 2008Q3

REPORT INFORMATION
  Report Type: 
  Country: None (occurrence: None)
  Receive Date: 20080812
  Receipt Date: 20080731
  Transmission Date: 20090109
  Serious: Yes (Death, Hospitalization)
  Sender: FDA-Public Use
  Company Number: 2008JP001868

PATIENT
  Age: 71 Year
  Sex: Female

DRUGS (10)
  1. PROGRAF [Suspect]
     Dosage: ORAL; 3 MG, UID/QD, ORAL; 1 MG, /D, ORAL
     Route: 048
     Dates: start: 20070201, end: 20070301
  2. PROGRAF [Suspect]
     Dosage: ORAL; 3 MG, UID/QD, ORAL; 1 MG, /D, ORAL
     Route: 048
     Dates: start: 20070301, end: 20080330
  3. PROGRAF [Suspect]
     Dosage: ORAL; 3 MG, UID/QD, ORAL; 1 MG, /D, ORAL
     Route: 048
     Dates: end: 20080403
  4. RABEPRAZOLE SODIUM [Concomitant]
  5. ALFAROL (ALFACALICIDOL) [Concomitant]
  6. BAKUMONDOUTO (HERBAL EXTRACT NOS) [Concomitant]
  7. ASPARA-CA (ASPARTATE CALCIUM) [Concomitant]
  8. CODEINE PHOSHATE FORMULATION [Concomitant]
  9. OZEX (TOSUFLOXACIN TOSILATE) [Concomitant]
  10. PREDONINE (PREDNISOLONE) [Concomitant]

REACTIONS (3)
  - LUNG DISORDER [None]
  - PNEUMONIA [None]
  - RESPIRATORY FAILURE [None]
